FAERS Safety Report 20135849 (Version 6)
Quarter: 2022Q2

REPORT INFORMATION
  Report Type: Report from Study
  Country: US (occurrence: US)
  Receive Date: 20211201
  Receipt Date: 20220408
  Transmission Date: 20220721
  Serious: Yes (Other)
  Sender: FDA-Public Use
  Company Number: US-GLAXOSMITHKLINE-US2021AMR241307

PATIENT
  Age: 73 Year
  Sex: Male

DRUGS (1)
  1. BELANTAMAB MAFODOTIN [Suspect]
     Active Substance: BELANTAMAB MAFODOTIN
     Indication: Product used for unknown indication
     Dosage: UNK
     Dates: start: 20210817

REACTIONS (3)
  - Visual acuity reduced [Not Recovered/Not Resolved]
  - Keratopathy [Unknown]
  - Ophthalmological examination abnormal [Unknown]

NARRATIVE: CASE EVENT DATE: 20220223
